FAERS Safety Report 15509664 (Version 1)
Quarter: 2018Q4

REPORT INFORMATION
  Report Type: Spontaneous
  Country: RU (occurrence: RU)
  Receive Date: 20181016
  Receipt Date: 20181016
  Transmission Date: 20190205
  Serious: Yes (Hospitalization)
  Sender: FDA-Public Use
  Company Number: RU-GLAXOSMITHKLINE-RU2005000030

PATIENT
  Age: 65 Year
  Sex: Female

DRUGS (4)
  1. AAE581 [Suspect]
     Active Substance: BALICATIB
     Indication: OSTEOPOROSIS POSTMENOPAUSAL
     Dosage: 25 MG, QD
     Route: 048
     Dates: start: 20040803
  2. DICLOFENAC [Suspect]
     Active Substance: DICLOFENAC
     Indication: PRODUCT USED FOR UNKNOWN INDICATION
     Dosage: UNK
     Route: 065
  3. CALCIUM [Concomitant]
     Active Substance: CALCIUM
     Indication: OSTEOPOROSIS POSTMENOPAUSAL
     Dosage: 500 MG, BID
     Route: 048
  4. ERGOCALCIFEROL (VITAMIN D) [Concomitant]
     Active Substance: ERGOCALCIFEROL
     Indication: OSTEOPOROSIS POSTMENOPAUSAL
     Dosage: 400-800 IU, QD
     Route: 065

REACTIONS (1)
  - Traumatic fracture [Recovered/Resolved]

NARRATIVE: CASE EVENT DATE: 20041209
